FAERS Safety Report 24018241 (Version 1)
Quarter: 2024Q2

REPORT INFORMATION
  Report Type: Report from Study
  Country: US (occurrence: US)
  Receive Date: 20240627
  Receipt Date: 20240627
  Transmission Date: 20240715
  Serious: Yes (Other)
  Sender: FDA-Public Use
  Company Number: US-ABBVIE-5815592

PATIENT
  Sex: Male

DRUGS (1)
  1. HUMIRA [Suspect]
     Active Substance: ADALIMUMAB
     Indication: Colitis ulcerative
     Dosage: FORM STRENGTH: 40 MG
     Route: 058
     Dates: start: 20240520

REACTIONS (3)
  - Cyst [Recovering/Resolving]
  - Injection site bruising [Recovering/Resolving]
  - Ingrown hair [Recovering/Resolving]

NARRATIVE: CASE EVENT DATE: 20240101
